FAERS Safety Report 4685946-1 (Version None)
Quarter: 2005Q2

REPORT INFORMATION
  Report Type: 
  Country: None (occurrence: None)
  Receive Date: 20050609
  Receipt Date: 20050601
  Transmission Date: 20051028
  Serious: Yes (Hospitalization)
  Sender: FDA-Public Use
  Company Number: US-KINGPHARMUSA00001-K200500738

PATIENT
  Age: 21 Year
  Sex: Female
  Weight: 63 kg

DRUGS (1)
  1. SEPTRA [Suspect]
     Indication: ACNE
     Route: 048
     Dates: start: 20050401, end: 20050501

REACTIONS (7)
  - ACUTE RESPIRATORY DISTRESS SYNDROME [None]
  - ASTHENIA [None]
  - BRONCHITIS [None]
  - FATIGUE [None]
  - PNEUMONIA [None]
  - PYREXIA [None]
  - RESPIRATORY RATE INCREASED [None]
